FAERS Safety Report 15869101 (Version 6)
Quarter: 2024Q1

REPORT INFORMATION
  Report Type: Report from Study
  Country: IT (occurrence: IT)
  Receive Date: 20190125
  Receipt Date: 20240319
  Transmission Date: 20240410
  Serious: Yes (Other)
  Sender: FDA-Public Use
  Company Number: IT-BRISTOL-MYERS SQUIBB COMPANY-BMS-2017-121918

PATIENT
  Age: 63 Year
  Sex: Female
  Weight: 62 kg

DRUGS (49)
  1. CAPECITABINE [Suspect]
     Active Substance: CAPECITABINE
     Indication: Breast cancer
     Dosage: 15000 MILLIGRAM, BID
     Route: 048
     Dates: start: 20171220, end: 20180108
  2. CAPECITABINE [Suspect]
     Active Substance: CAPECITABINE
     Dosage: 15000 MILLIGRAM, Q3W, FOR 14 DAYS EVERY
     Route: 048
     Dates: start: 20180119, end: 20180709
  3. EXEMESTANE [Suspect]
     Active Substance: EXEMESTANE
     Indication: Breast cancer
     Dosage: 25 MILLIGRAM, QD
     Route: 048
     Dates: start: 20170726, end: 20171219
  4. PACLITAXEL [Suspect]
     Active Substance: PACLITAXEL
     Indication: Breast cancer
     Dosage: 110 MILLIGRAM/SQ. METER, QW (85MG/M2)
     Route: 042
     Dates: start: 20170131, end: 20170210
  5. PACLITAXEL [Suspect]
     Active Substance: PACLITAXEL
     Dosage: 80 MILLIGRAM/SQ. METER, QW
     Route: 042
     Dates: start: 20170224
  6. PACLITAXEL [Suspect]
     Active Substance: PACLITAXEL
     Dosage: 110 MILLIGRAM/SQ. METER, QW
     Route: 042
     Dates: start: 20170210
  7. PACLITAXEL [Suspect]
     Active Substance: PACLITAXEL
     Dosage: 85 MILLIGRAM/SQ. METER, QW
     Route: 042
     Dates: start: 20170418
  8. PACLITAXEL [Suspect]
     Active Substance: PACLITAXEL
     Dosage: 85 MILLIGRAM/SQ. METER, QW
     Route: 042
     Dates: start: 20170705, end: 20170719
  9. EXEMESTANE [Suspect]
     Active Substance: EXEMESTANE
     Indication: Breast cancer
     Dosage: 25 MILLIGRAM, QD
     Route: 048
     Dates: start: 20170726, end: 20171219
  10. TRASTUZUMAB [Suspect]
     Active Substance: TRASTUZUMAB
     Indication: HER2 positive breast cancer
     Dosage: 6 MILLIGRAM/KILOGRAM, Q3W
     Route: 042
     Dates: start: 20170224, end: 20171128
  11. TRASTUZUMAB [Suspect]
     Active Substance: TRASTUZUMAB
     Dosage: 8 MILLIGRAM/KILOGRAM, Q3W
     Route: 042
     Dates: start: 20170131, end: 20170131
  12. TRASTUZUMAB [Suspect]
     Active Substance: TRASTUZUMAB
     Dosage: 600 MILLIGRAM, Q3W
     Route: 042
     Dates: start: 20180727, end: 20180817
  13. TRASTUZUMAB [Suspect]
     Active Substance: TRASTUZUMAB
     Dosage: 6 MILLIGRAM/KILOGRAM, Q3W
     Route: 042
     Dates: start: 20180811, end: 20181009
  14. PACLITAXEL [Suspect]
     Active Substance: PACLITAXEL
     Indication: Breast cancer
     Dosage: 95 MILLIGRAM/SQ. METER, QW
     Route: 048
     Dates: start: 20170426, end: 20170628
  15. PACLITAXEL [Suspect]
     Active Substance: PACLITAXEL
     Dosage: 115 MILLIGRAM, QW
     Route: 048
     Dates: start: 20170224, end: 20170403
  16. VINORELBINE [Suspect]
     Active Substance: VINORELBINE TARTRATE
     Indication: Breast cancer
     Dosage: 80 MILLIGRAM
     Route: 048
     Dates: start: 20181106
  17. VINORELBINE [Suspect]
     Active Substance: VINORELBINE TARTRATE
     Dosage: 80 MILLIGRAM, Q3W
     Route: 048
     Dates: start: 20180911
  18. VINORELBINE [Suspect]
     Active Substance: VINORELBINE TARTRATE
     Dosage: 60 MILLIGRAM/SQ. METER, Q3W
     Route: 048
     Dates: start: 20180727, end: 20180817
  19. TAXOL [Suspect]
     Active Substance: PACLITAXEL
     Indication: HER2 positive breast cancer
     Dosage: 85 MILLIGRAM/SQ. METER, QW
     Route: 042
     Dates: start: 20170705
  20. TAXOL [Suspect]
     Active Substance: PACLITAXEL
     Indication: Breast cancer
     Dosage: 110 MILLIGRAM/SQ. METER, QW
     Route: 042
     Dates: start: 20170210
  21. TAXOL [Suspect]
     Active Substance: PACLITAXEL
     Dosage: 80 MILLIGRAM/SQ. METER, QW
     Route: 042
     Dates: start: 20170224
  22. TAXOL [Suspect]
     Active Substance: PACLITAXEL
     Dosage: 85 MILLIGRAM/SQ. METER, QW
     Route: 042
     Dates: start: 20170418
  23. TAXOL [Suspect]
     Active Substance: PACLITAXEL
     Dosage: 110 MILLIGRAM/SQ. METER, QW
     Route: 042
     Dates: start: 20170131
  24. TAXOL [Suspect]
     Active Substance: PACLITAXEL
     Dosage: 95 MILLIGRAM/SQ. METER, QW
     Route: 042
     Dates: start: 20170426, end: 20170628
  25. PERTUZUMAB [Suspect]
     Active Substance: PERTUZUMAB
     Indication: HER2 positive breast cancer
     Dosage: 420 MG/3 WEEK, UNK
     Route: 042
     Dates: start: 20170131, end: 20170224
  26. PERTUZUMAB [Suspect]
     Active Substance: PERTUZUMAB
     Dosage: 840 MILLIGRAM, Q3W (420 MG/3 WEEK, UNK)
     Route: 042
     Dates: start: 20170131, end: 20170131
  27. PERTUZUMAB [Suspect]
     Active Substance: PERTUZUMAB
     Dosage: 420 MILLIGRAM, Q3W, 8 MG/KG
     Route: 042
     Dates: start: 20170224, end: 20171128
  28. LAPATINIB [Suspect]
     Active Substance: LAPATINIB
     Indication: Breast cancer
     Dosage: 250 MILLIGRAM (THREE TIMES A DAY)
     Route: 048
     Dates: start: 20180223, end: 20180302
  29. LAPATINIB [Suspect]
     Active Substance: LAPATINIB
     Dosage: 250 MILLIGRAM, Q3W (FOUR TIMES A DAY)
     Route: 048
     Dates: start: 20180303, end: 201803
  30. LAPATINIB [Suspect]
     Active Substance: LAPATINIB
     Dosage: 250 MILLIGRAM, Q3W (TWICE A DAY)
     Route: 048
     Dates: start: 20180216, end: 20180222
  31. LAPATINIB [Suspect]
     Active Substance: LAPATINIB
     Dosage: 250 MILLIGRAM, 0.3 TIMES PER DAY
     Route: 048
     Dates: start: 20180330, end: 20180720
  32. LAPATINIB [Suspect]
     Active Substance: LAPATINIB
     Dosage: 250 MILLIGRAM, Q3W, FIVE TIMES A DAY
     Route: 048
     Dates: start: 20171219, end: 20180108
  33. LAPATINIB [Suspect]
     Active Substance: LAPATINIB
     Dosage: 250 MILLIGRAM, FOUR TIMES A DAY
     Route: 048
     Dates: start: 201803, end: 201803
  34. RACECADOTRIL [Concomitant]
     Active Substance: RACECADOTRIL
     Indication: Diarrhoea
     Dosage: UNK
     Route: 065
     Dates: start: 20170531
  35. RACECADOTRIL [Concomitant]
     Active Substance: RACECADOTRIL
     Dosage: UNK
     Route: 065
     Dates: start: 20170705, end: 20170726
  36. BECLOMETHASONE DIPROPIONATE [Concomitant]
     Active Substance: BECLOMETHASONE DIPROPIONATE
     Dosage: UNK
     Route: 065
  37. IMODIUM [Concomitant]
     Active Substance: LOPERAMIDE HYDROCHLORIDE
     Indication: Product used for unknown indication
     Dosage: UNK
     Route: 065
     Dates: start: 20170705, end: 20170821
  38. SERTRALINE [Concomitant]
     Active Substance: SERTRALINE HYDROCHLORIDE
     Indication: Product used for unknown indication
     Dosage: UNK
     Route: 065
  39. AMBROXOL HYDROCHLORIDE [Concomitant]
     Active Substance: AMBROXOL HYDROCHLORIDE
     Indication: Product used for unknown indication
     Dosage: UNK
     Route: 065
     Dates: start: 20170702, end: 20170705
  40. XANAX [Concomitant]
     Active Substance: ALPRAZOLAM
     Indication: Product used for unknown indication
     Dosage: 1 DOSAGE FORM
     Route: 042
     Dates: start: 20170131
  41. CHOLECALCIFEROL [Concomitant]
     Active Substance: CHOLECALCIFEROL
     Indication: Product used for unknown indication
     Dosage: UNK
     Route: 065
     Dates: start: 20170726
  42. GABAPENTIN [Concomitant]
     Active Substance: GABAPENTIN
     Indication: Product used for unknown indication
     Dosage: UNK
     Route: 065
  43. ZOFRAN [Concomitant]
     Active Substance: ONDANSETRON HYDROCHLORIDE
     Indication: Product used for unknown indication
     Dosage: UNK
     Route: 065
  44. BETAMETHASONE SODIUM PHOSPHATE [Concomitant]
     Active Substance: BETAMETHASONE SODIUM PHOSPHATE
     Indication: Product used for unknown indication
     Dosage: UNK
     Route: 065
  45. AMLODIPINE BESYLATE\OLMESARTAN MEDOXOMIL [Concomitant]
     Active Substance: AMLODIPINE BESYLATE\OLMESARTAN MEDOXOMIL
     Indication: Product used for unknown indication
     Dosage: UNK
     Route: 065
     Dates: start: 20171004
  46. DENOSUMAB [Concomitant]
     Active Substance: DENOSUMAB
     Indication: Product used for unknown indication
     Dosage: UNK
     Route: 065
     Dates: start: 20170823, end: 20180727
  47. BECLOMETHASONE DIPROPIONATE [Concomitant]
     Active Substance: BECLOMETHASONE DIPROPIONATE
     Indication: Product used for unknown indication
     Dosage: UNK
     Route: 065
     Dates: start: 20170702, end: 20170705
  48. MEDROL [Concomitant]
     Active Substance: METHYLPREDNISOLONE
     Dosage: UNK
     Route: 065
     Dates: start: 20180725, end: 20180731
  49. MEDROL [Concomitant]
     Active Substance: METHYLPREDNISOLONE
     Dosage: UNK
     Route: 065
     Dates: start: 20180720, end: 20180724

REACTIONS (7)
  - Malaise [Recovered/Resolved]
  - Hypokalaemia [Recovered/Resolved]
  - Cough [Recovered/Resolved]
  - Leukopenia [Recovered/Resolved]
  - Diarrhoea [Recovered/Resolved]
  - Paraesthesia [Recovered/Resolved]
  - Asthenia [Recovered/Resolved]

NARRATIVE: CASE EVENT DATE: 20170418
